FAERS Safety Report 10174743 (Version 1)
Quarter: 2014Q2

REPORT INFORMATION
  Report Type: Spontaneous
  Country: US (occurrence: None)
  Receive Date: 20140416
  Receipt Date: 20140416
  Transmission Date: 20141212
  Serious: No
  Sender: FDA-Public Use
  Company Number: 163-POMAL-14015317

PATIENT
  Age: 78 Year
  Sex: Female

DRUGS (2)
  1. POMALYST [Suspect]
     Indication: PLASMA CELL MYELOMA
     Dosage: 3 MG,  1 IN 1 D, PO ,  UNKNOWN-UNKNOWN THERAPY DATES
  2. WARFARIN (WARFARIN) [Concomitant]

REACTIONS (2)
  - Dysuria [None]
  - Pollakiuria [None]
